FAERS Safety Report 11195823 (Version 1)
Quarter: 2015Q2

REPORT INFORMATION
  Report Type: Spontaneous
  Country: BR (occurrence: BR)
  Receive Date: 20150617
  Receipt Date: 20150617
  Transmission Date: 20150821
  Serious: Yes (Other)
  Sender: FDA-Public Use
  Company Number: BR-TEVA-570197ISR

PATIENT
  Age: 58 Year
  Sex: Female
  Weight: 53 kg

DRUGS (8)
  1. EVOTERIN [Concomitant]
     Active Substance: IRINOTECAN HYDROCHLORIDE
     Indication: COLON CANCER
     Dosage: 15.5501 MILLIGRAM DAILY;
     Route: 058
     Dates: start: 20141119
  2. INDAPEN SR [Concomitant]
     Active Substance: INDAPAMIDE
  3. IMOSEC [Concomitant]
     Active Substance: LOPERAMIDE
     Route: 048
  4. OMEPRAZOLE. [Concomitant]
     Active Substance: OMEPRAZOLE
  5. VONAU [Concomitant]
     Active Substance: ONDANSETRON HYDROCHLORIDE
  6. DECADRON [Concomitant]
     Active Substance: DEXAMETHASONE
  7. TEVAOXALI [Suspect]
     Active Substance: OXALIPLATIN
     Indication: COLON CANCER
     Dosage: 8.0106 MILLIGRAM DAILY;
     Route: 058
     Dates: start: 20141119
  8. PLASIL [Concomitant]
     Active Substance: METOCLOPRAMIDE HYDROCHLORIDE

REACTIONS (3)
  - Vomiting [Recovered/Resolved]
  - Salivary hypersecretion [Recovered/Resolved]
  - Nausea [Recovered/Resolved]

NARRATIVE: CASE EVENT DATE: 20150512
